FAERS Safety Report 7067574-6 (Version None)
Quarter: 2010Q4

REPORT INFORMATION
  Report Type: 
  Country: None (occurrence: None)
  Receive Date: 20101028
  Receipt Date: 20101015
  Transmission Date: 20110411
  Serious: Yes (Hospitalization, Other)
  Sender: FDA-Public Use
  Company Number: US-ELI_LILLY_AND_COMPANY-US201008005782

PATIENT
  Sex: Female

DRUGS (7)
  1. FORTEO [Suspect]
     Indication: OSTEOPOROSIS
     Dosage: 20 UG, DAILY (1/D)
     Dates: start: 20100302
  2. ASPIRIN [Concomitant]
  3. TOPROL-XL [Concomitant]
  4. ACTOS [Concomitant]
  5. PRAVACHOL [Concomitant]
  6. AMARYL [Concomitant]
  7. DETROL LA [Concomitant]

REACTIONS (1)
  - OSTEOARTHRITIS [None]
